FAERS Safety Report 12857954 (Version 1)
Quarter: 2016Q4

REPORT INFORMATION
  Report Type: Spontaneous
  Country: US (occurrence: US)
  Receive Date: 20161018
  Receipt Date: 20161018
  Transmission Date: 20170207
  Serious: No
  Sender: FDA-Public Use
  Company Number: US-SA-2016SA147192

PATIENT
  Age: 48 Year
  Sex: Female

DRUGS (2)
  1. METHYLPREDNISOLONE. [Concomitant]
     Active Substance: METHYLPREDNISOLONE
     Indication: PREMEDICATION
     Dates: start: 20160808
  2. LEMTRADA [Suspect]
     Active Substance: ALEMTUZUMAB
     Indication: MULTIPLE SCLEROSIS
     Route: 041
     Dates: start: 20160808, end: 20160808

REACTIONS (3)
  - Anxiety [Unknown]
  - Musculoskeletal pain [Unknown]
  - Chest discomfort [Unknown]

NARRATIVE: CASE EVENT DATE: 20160808
